FAERS Safety Report 20228370 (Version 1)
Quarter: 2021Q4

REPORT INFORMATION
  Report Type: Report from Study
  Country: US (occurrence: US)
  Receive Date: 20211224
  Receipt Date: 20211224
  Transmission Date: 20220303
  Serious: Yes (Death, Hospitalization, Other)
  Sender: FDA-Public Use
  Company Number: US-BoehringerIngelheim-2021-BI-144943

PATIENT
  Age: 71 Year
  Sex: Female
  Weight: 62 kg

DRUGS (5)
  1. OFEV [Suspect]
     Active Substance: NINTEDANIB
     Indication: Product used for unknown indication
     Route: 048
     Dates: start: 20210113, end: 20210505
  2. ALBUTEROL SULFATE [Concomitant]
     Active Substance: ALBUTEROL SULFATE
     Indication: Dyspnoea
     Dosage: DOSE: 2 PUFFS Q4 HOURS PRN
     Route: 055
     Dates: start: 20200627
  3. PIRFENIDONE [Concomitant]
     Active Substance: PIRFENIDONE
     Indication: Interstitial lung disease
     Dosage: 3 TABLETS , 801 MG TID
     Route: 048
     Dates: start: 20210902
  4. RITUXIMAB [Concomitant]
     Active Substance: RITUXIMAB
     Indication: Rheumatoid arthritis
     Dosage: ROUTE: INJECTION
     Route: 050
     Dates: start: 20200225
  5. PREDNISONE [Concomitant]
     Active Substance: PREDNISONE
     Indication: Inflammation
     Dosage: ROUTE: INJECTION

REACTIONS (3)
  - Dyspnoea [Fatal]
  - Acute respiratory failure [Unknown]
  - COVID-19 pneumonia [Unknown]

NARRATIVE: CASE EVENT DATE: 20211025
